FAERS Safety Report 16403407 (Version 1)
Quarter: 2019Q2

REPORT INFORMATION
  Report Type: Spontaneous
  Country: US (occurrence: US)
  Receive Date: 20190501
  Receipt Date: 20190501
  Transmission Date: 20190711
  Serious: No
  Sender: FDA-Public Use
  Company Number: None

PATIENT
  Age: 47 Year
  Sex: Female

DRUGS (2)
  1. TALTZ [Suspect]
     Active Substance: IXEKIZUMAB
     Indication: PSORIASIS
     Dosage: ?          OTHER FREQUENCY:WEEK 12; EVERY 4 W;?
     Route: 058
     Dates: start: 201902
  2. TALTZ [Suspect]
     Active Substance: IXEKIZUMAB
     Indication: PUSTULAR PSORIASIS

REACTIONS (1)
  - Septic embolus [None]
